FAERS Safety Report 13301227 (Version 3)
Quarter: 2017Q2

REPORT INFORMATION
  Report Type: Spontaneous
  Country: US (occurrence: US)
  Receive Date: 20170307
  Receipt Date: 20170627
  Transmission Date: 20170830
  Serious: No
  Sender: FDA-Public Use
  Company Number: US-PFIZER INC-2017090717

PATIENT
  Age: 70 Year
  Sex: Male

DRUGS (1)
  1. SUTENT [Suspect]
     Active Substance: SUNITINIB MALATE
     Indication: PANCREATIC NEUROENDOCRINE TUMOUR METASTATIC
     Dosage: 37.5 MG, DAILY
     Dates: start: 20170111

REACTIONS (5)
  - Aspartate aminotransferase increased [Unknown]
  - Sensation of foreign body [Unknown]
  - Alanine aminotransferase increased [Unknown]
  - Dyspepsia [Unknown]
  - Dysphagia [Unknown]
